FAERS Safety Report 10405343 (Version 1)
Quarter: 2014Q3

REPORT INFORMATION
  Report Type: Spontaneous
  Country: FR (occurrence: FR)
  Receive Date: 20140825
  Receipt Date: 20140825
  Transmission Date: 20150326
  Serious: Yes (Other)
  Sender: FDA-Public Use
  Company Number: FR-ELI_LILLY_AND_COMPANY-FR201408004703

PATIENT
  Age: 60 Year
  Sex: Male

DRUGS (2)
  1. ALIMTA [Suspect]
     Active Substance: PEMETREXED DISODIUM
     Indication: LUNG NEOPLASM MALIGNANT
     Dosage: 500 MG, CYCLICAL
     Route: 042
  2. ALIMTA [Suspect]
     Active Substance: PEMETREXED DISODIUM
     Indication: METASTASES TO CENTRAL NERVOUS SYSTEM

REACTIONS (7)
  - Deafness neurosensory [Unknown]
  - Gait disturbance [Not Recovered/Not Resolved]
  - Dizziness [Not Recovered/Not Resolved]
  - Nystagmus [Unknown]
  - Feeling drunk [Not Recovered/Not Resolved]
  - Ataxia [Unknown]
  - Vertigo positional [Not Recovered/Not Resolved]

NARRATIVE: CASE EVENT DATE: 201312
